FAERS Safety Report 24451421 (Version 2)
Quarter: 2025Q1

REPORT INFORMATION
  Report Type: Spontaneous
  Country: JP (occurrence: JP)
  Receive Date: 20241017
  Receipt Date: 20250124
  Transmission Date: 20250409
  Serious: Yes (Death, Other)
  Sender: EXELIXIS
  Company Number: JP-TAKEDA-2024TJP003002

PATIENT
  Age: 8 Decade
  Sex: Male

DRUGS (1)
  1. CABOMETYX [Suspect]
     Active Substance: CABOZANTINIB S-MALATE
     Indication: Hepatocellular carcinoma
     Dosage: 20 MG, QD
     Route: 048
     Dates: start: 20231115, end: 20240103

REACTIONS (6)
  - Alpha 1 foetoprotein increased [Not Recovered/Not Resolved]
  - Hepatic failure [Fatal]
  - Hepatocellular carcinoma [Fatal]
  - Blood pressure increased [Unknown]
  - Fatigue [Unknown]
  - Diarrhoea [Recovered/Resolved]
